FAERS Safety Report 5373552-5 (Version None)
Quarter: 2007Q2

REPORT INFORMATION
  Report Type: 
  Country: None (occurrence: None)
  Receive Date: 20070628
  Receipt Date: 20070620
  Transmission Date: 20071010
  Serious: Yes (Life-Threatening)
  Sender: FDA-Public Use
  Company Number: B0476468A

PATIENT
  Age: 49 Year
  Sex: Male

DRUGS (7)
  1. AUGMENTIN '125' [Suspect]
     Route: 042
     Dates: start: 20070304
  2. ACUPAN [Concomitant]
     Route: 042
     Dates: start: 20070304
  3. HYPNOVEL [Concomitant]
  4. DIPRIVAN [Concomitant]
  5. SUFENTA [Concomitant]
  6. NIMBEX [Concomitant]
  7. DESFLURANE [Concomitant]

REACTIONS (4)
  - ANAPHYLACTIC REACTION [None]
  - ANGIOEDEMA [None]
  - ERYTHEMA [None]
  - HYPOTENSION [None]
